FAERS Safety Report 6178431-1 (Version None)
Quarter: 2009Q2

REPORT INFORMATION
  Report Type: 
  Country: None (occurrence: None)
  Receive Date: 20090504
  Receipt Date: 20090430
  Transmission Date: 20091009
  Serious: Yes (Other)
  Sender: FDA-Public Use
  Company Number: US-ALLERGAN-0906068US

PATIENT
  Sex: Male

DRUGS (2)
  1. PRED FORTE [Suspect]
     Indication: MACULAR OEDEMA
     Dosage: UNK, TID
     Route: 047
  2. XIBROM [Suspect]
     Indication: MACULAR OEDEMA
     Dosage: UNK, TID
     Route: 047

REACTIONS (1)
  - CORNEAL DECOMPENSATION [None]
